FAERS Safety Report 23170777 (Version 3)
Quarter: 2024Q1

REPORT INFORMATION
  Report Type: Report from Study
  Country: BR (occurrence: BR)
  Receive Date: 20231110
  Receipt Date: 20240131
  Transmission Date: 20240410
  Serious: Yes (Life-Threatening, Hospitalization, Other)
  Sender: FDA-Public Use
  Company Number: BR-TAKEDA-2023TUS109241

PATIENT
  Age: 11 Year
  Sex: Male
  Weight: 40 kg

DRUGS (7)
  1. HEMO-8R [Suspect]
     Active Substance: ANTIHEMOPHILIC FACTOR, HUMAN RECOMBINANT
     Indication: Factor VIII deficiency
     Dosage: UNK
     Route: 042
     Dates: start: 20160621
  2. HEMO-8R [Suspect]
     Active Substance: ANTIHEMOPHILIC FACTOR, HUMAN RECOMBINANT
     Indication: Prophylaxis
  3. HALOPERIDOL [Concomitant]
     Active Substance: HALOPERIDOL
     Indication: Attention deficit hyperactivity disorder
     Dosage: 2.5 MILLIGRAM, QD
     Route: 065
     Dates: start: 201602, end: 20220701
  4. FLUOXETINE [Concomitant]
     Active Substance: FLUOXETINE HYDROCHLORIDE
     Indication: Attention deficit hyperactivity disorder
     Dosage: UNK UNK, QD
     Route: 065
     Dates: start: 201706
  5. ALBENDAZOLE [Concomitant]
     Active Substance: ALBENDAZOLE
     Indication: Infection
     Dosage: UNK UNK, QD
     Route: 065
     Dates: start: 201710, end: 201710
  6. IRON [Concomitant]
     Active Substance: IRON
     Indication: Anaemia
     Dosage: 40 MILLIGRAM, QD
     Route: 065
     Dates: start: 20181022, end: 2018
  7. TOPIRAMATE [Concomitant]
     Active Substance: TOPIRAMATE
     Indication: Epilepsy
     Dosage: 50 MILLIGRAM
     Route: 065
     Dates: start: 2022

REACTIONS (1)
  - Appendicitis [Recovered/Resolved]

NARRATIVE: CASE EVENT DATE: 20230812
